FAERS Safety Report 10357953 (Version 5)
Quarter: 2016Q3

REPORT INFORMATION
  Report Type: Spontaneous
  Country: US (occurrence: US)
  Receive Date: 20140801
  Receipt Date: 20160706
  Transmission Date: 20161109
  Serious: Yes (Hospitalization, Other)
  Sender: FDA-Public Use
  Company Number: US-PFIZER INC-2014212629

PATIENT
  Age: 26 Year
  Sex: Female
  Weight: 46.71 kg

DRUGS (9)
  1. DILANTIN [Suspect]
     Active Substance: PHENYTOIN
     Dosage: 100 MG, 3X/DAY
     Route: 048
     Dates: start: 19810629
  2. TEGRETOL [Suspect]
     Active Substance: CARBAMAZEPINE
     Indication: SEIZURE
     Dosage: 400 MG, 4X/DAY
     Route: 048
     Dates: start: 197906
  3. MOGADON [Concomitant]
     Active Substance: NITRAZEPAM
     Indication: CONVULSION PROPHYLAXIS
     Dosage: 25 MG, DAILY (5MG TABLETS, 2 PILLS IN THE MORNING, ONE PILL AT NOON AND 2 PILLS AT NIGHT)
     Route: 048
     Dates: start: 1985
  4. IRON [Concomitant]
     Active Substance: IRON
     Dosage: 325 MG, 3X/DAY
     Route: 048
  5. DILANTIN [Suspect]
     Active Substance: PHENYTOIN
     Dosage: 100 MG, 2X/DAY
     Route: 048
  6. MOGADON [Concomitant]
     Active Substance: NITRAZEPAM
     Indication: SEIZURE
  7. CENTRUM [Concomitant]
     Active Substance: VITAMINS
     Dosage: 1 DF, 1X/DAY
     Route: 048
  8. DILANTIN [Suspect]
     Active Substance: PHENYTOIN
     Indication: GENERALISED TONIC-CLONIC SEIZURE
     Dosage: 200MG CAPSULES ONE IN THE MORNING AND TWO AT NIGHT
     Route: 048
     Dates: start: 1979
  9. ASA [Concomitant]
     Active Substance: ASPIRIN
     Dosage: 81 MG, UNK

REACTIONS (5)
  - Cutaneous lupus erythematosus [Not Recovered/Not Resolved]
  - Systemic lupus erythematosus [Not Recovered/Not Resolved]
  - Bone disorder [Unknown]
  - Condition aggravated [Recovering/Resolving]
  - Generalised tonic-clonic seizure [Recovering/Resolving]

NARRATIVE: CASE EVENT DATE: 19840413
